FAERS Safety Report 7371526-6 (Version None)
Quarter: 2011Q1

REPORT INFORMATION
  Report Type: 
  Country: None (occurrence: None)
  Receive Date: 20110324
  Receipt Date: 20110321
  Transmission Date: 20110831
  Serious: Yes (Other)
  Sender: FDA-Public Use
  Company Number: US-PFIZER INC-2011057195

PATIENT
  Sex: Female
  Weight: 47.619 kg

DRUGS (4)
  1. NICOTROL [Suspect]
     Dosage: UNK DOSE DAILY
     Route: 055
  2. OXYGEN [Concomitant]
     Dosage: UNK
  3. ALBUTEROL [Concomitant]
     Dosage: UNK
  4. NICOTROL [Suspect]
     Dosage: 10 MG, AS NEEDED
     Route: 055
     Dates: start: 20050101

REACTIONS (1)
  - OBSTRUCTIVE AIRWAYS DISORDER [None]
